FAERS Safety Report 5944443-3 (Version None)
Quarter: 2008Q4

REPORT INFORMATION
  Report Type: 
  Country: None (occurrence: None)
  Receive Date: 20081021
  Receipt Date: 20070921
  Transmission Date: 20090506
  Serious: Yes (Other)
  Sender: FDA-Public Use
  Company Number: HQWYE304425SEP07

PATIENT
  Age: 68 Year
  Sex: Female
  Weight: 64.47 kg

DRUGS (2)
  1. PREMARIN [Suspect]
     Indication: MENOPAUSAL SYMPTOMS
     Dosage: 0.3 MG 1X PER 1 DAY, ORAL
     Route: 048
     Dates: start: 20070810
  2. LISINOPRIL [Concomitant]

REACTIONS (3)
  - AMNESIA [None]
  - DRUG INEFFECTIVE [None]
  - LABORATORY TEST ABNORMAL [None]
